FAERS Safety Report 5054051-7 (Version None)
Quarter: 2006Q3

REPORT INFORMATION
  Report Type: 
  Country: None (occurrence: None)
  Receive Date: 20060713
  Receipt Date: 20060629
  Transmission Date: 20061208
  Serious: Yes (Death, Other)
  Sender: FDA-Public Use
  Company Number: 2006S1000122

PATIENT
  Age: 84 Year
  Sex: Male

DRUGS (14)
  1. CUBICIN [Suspect]
     Indication: STAPHYLOCOCCAL SEPSIS
  2. ACETYLSALICYLIC ACID SRT [Concomitant]
  3. ATENOLOL [Concomitant]
  4. GLIPIZIDE [Concomitant]
  5. LEVOFLOXACIN [Concomitant]
  6. CEFOTAXIME [Concomitant]
  7. CEPHALEXIN [Concomitant]
  8. VANCOMYCIN [Concomitant]
  9. METRONIDAZOLE [Concomitant]
  10. MOXIFLOXACIN HCL [Concomitant]
  11. FUROSEMIDE [Concomitant]
  12. LISINOPRIL [Concomitant]
  13. ISOSORBIDE DINITRATE [Concomitant]
  14. HYDRALAZINE HCL [Concomitant]

REACTIONS (20)
  - ACIDOSIS [None]
  - ANURIA [None]
  - BLOOD CREATININE INCREASED [None]
  - BLOOD PH DECREASED [None]
  - CREPITATIONS [None]
  - DERMATITIS [None]
  - DISEASE PROGRESSION [None]
  - ELECTROLYTE IMBALANCE [None]
  - HAEMODIALYSIS [None]
  - HENOCH-SCHONLEIN PURPURA [None]
  - HYPOTENSION [None]
  - LOSS OF CONSCIOUSNESS [None]
  - MENTAL STATUS CHANGES [None]
  - PACEMAKER COMPLICATION [None]
  - RENAL TUBULAR NECROSIS [None]
  - RESPIRATORY DISTRESS [None]
  - SOMNOLENCE [None]
  - STAPHYLOCOCCAL SEPSIS [None]
  - VASCULITIS NECROTISING [None]
  - VENOUS PRESSURE JUGULAR INCREASED [None]
